FAERS Safety Report 21033733 (Version 1)
Quarter: 2022Q3

REPORT INFORMATION
  Report Type: Spontaneous
  Country: GB (occurrence: GB)
  Receive Date: 20220701
  Receipt Date: 20220701
  Transmission Date: 20221027
  Serious: Yes (Other)
  Sender: FDA-Public Use
  Company Number: None

PATIENT
  Age: 49 Year
  Sex: Male
  Weight: 83 kg

DRUGS (1)
  1. PRAMIPEXOLE [Suspect]
     Active Substance: PRAMIPEXOLE
     Indication: Restless legs syndrome
     Dosage: UNKNOWN
     Route: 065

REACTIONS (4)
  - Medication error [Unknown]
  - Restless legs syndrome [Not Recovered/Not Resolved]
  - Off label use [Unknown]
  - Body surface area increased [Unknown]
